FAERS Safety Report 8391926-5 (Version None)
Quarter: 2012Q2

REPORT INFORMATION
  Report Type: 
  Country: None (occurrence: None)
  Receive Date: 20120529
  Receipt Date: 20120524
  Transmission Date: 20120825
  Serious: Yes (Hospitalization)
  Sender: FDA-Public Use
  Company Number: JP-GLAXOSMITHKLINE-B0801220A

PATIENT
  Age: 9 Year
  Sex: Male

DRUGS (3)
  1. SINGULAIR [Concomitant]
     Route: 048
  2. RELENZA [Suspect]
     Indication: INFLUENZA
     Dosage: 20MG PER DAY
     Route: 055
     Dates: start: 20120317
  3. VOLTAREN [Suspect]
     Indication: PRODUCT USED FOR UNKNOWN INDICATION
     Route: 054
     Dates: start: 20120317

REACTIONS (5)
  - SPEECH DISORDER [None]
  - BRONCHOSPASM [None]
  - WHEEZING [None]
  - RESPIRATORY DISTRESS [None]
  - DYSPNOEA [None]
